FAERS Safety Report 5384282-8 (Version None)
Quarter: 2007Q3

REPORT INFORMATION
  Report Type: 
  Country: None (occurrence: None)
  Receive Date: 20070710
  Receipt Date: 20061017
  Transmission Date: 20080115
  Serious: Yes (Hospitalization, Other)
  Sender: FDA-Public Use
  Company Number: 2006-01540

PATIENT
  Age: 47 Year
  Sex: Female

DRUGS (12)
  1. VELCADE [Suspect]
     Indication: MULTIPLE MYELOMA
     Dosage: 1.30 MG/M2, INTRAVENOUS 1.30 MG/M2, INTRAVENOUS
     Route: 042
     Dates: start: 20060421, end: 20060522
  2. VELCADE [Suspect]
     Indication: MULTIPLE MYELOMA
     Dosage: 1.30 MG/M2, INTRAVENOUS 1.30 MG/M2, INTRAVENOUS
     Route: 042
     Dates: start: 20060605, end: 20060608
  3. DEXAMETHASONE TAB [Suspect]
     Indication: MULTIPLE MYELOMA
     Dosage: 40.00 MG
  4. XANAX [Concomitant]
  5. FLEXERIL [Concomitant]
  6. NEXIUM [Concomitant]
  7. NIFEDIPINE [Concomitant]
  8. SYNTHROID [Concomitant]
  9. LORTAB [Concomitant]
  10. LASIX [Concomitant]
  11. COUMADIN [Concomitant]
  12. MS CONTIN [Concomitant]

REACTIONS (1)
  - PULMONARY HYPERTENSION [None]
